FAERS Safety Report 8741509 (Version 3)
Quarter: 2013Q1

REPORT INFORMATION
  Report Type: Spontaneous
  Country: US (occurrence: US)
  Receive Date: 20120824
  Receipt Date: 20130110
  Transmission Date: 20140127
  Serious: Yes (Other)
  Sender: FDA-Public Use
  Company Number: US-ASTRAZENECA-2012SE08388

PATIENT
  Age: 80 Year
  Sex: Female
  Weight: 68 kg

DRUGS (13)
  1. SYMBICORT PMDI [Suspect]
     Indication: ASTHMA
     Dosage: 160/4.5 MCG, TWICE A DAY
     Route: 055
  2. SYMBICORT PMDI [Suspect]
     Indication: BRONCHIECTASIS
     Dosage: 160/4.5 MCG, TWICE A DAY
     Route: 055
  3. SYMBICORT PMDI [Suspect]
     Indication: CHRONIC OBSTRUCTIVE PULMONARY DISEASE
     Dosage: 160/4.5 MCG, TWICE A DAY
     Route: 055
  4. SYMBICORT PMDI [Suspect]
     Indication: ASTHMA
     Dosage: 160/4.5 MCG, 1 PUFF DAILY
     Route: 055
     Dates: start: 2010
  5. SYMBICORT PMDI [Suspect]
     Indication: BRONCHIECTASIS
     Dosage: 160/4.5 MCG, 1 PUFF DAILY
     Route: 055
     Dates: start: 2010
  6. SYMBICORT PMDI [Suspect]
     Indication: CHRONIC OBSTRUCTIVE PULMONARY DISEASE
     Dosage: 160/4.5 MCG, 1 PUFF DAILY
     Route: 055
     Dates: start: 2010
  7. SYMBICORT PMDI [Suspect]
     Indication: ASTHMA
     Dosage: 160/4.5 MCG, SOMETIMES 2 PUFF DAILY
     Route: 055
     Dates: start: 2010
  8. SYMBICORT PMDI [Suspect]
     Indication: BRONCHIECTASIS
     Dosage: 160/4.5 MCG, SOMETIMES 2 PUFF DAILY
     Route: 055
     Dates: start: 2010
  9. SYMBICORT PMDI [Suspect]
     Indication: CHRONIC OBSTRUCTIVE PULMONARY DISEASE
     Dosage: 160/4.5 MCG, SOMETIMES 2 PUFF DAILY
     Route: 055
     Dates: start: 2010
  10. ARMOUR THYROID [Concomitant]
  11. COZAAR [Concomitant]
  12. FLUID PILL/WATER PILL [Concomitant]
  13. PILL FOR HERPES [Concomitant]
     Indication: HERPES VIRUS INFECTION

REACTIONS (16)
  - Cataract [Unknown]
  - Ulcerative keratitis [Unknown]
  - Eye disorder [Unknown]
  - Ocular neoplasm [Unknown]
  - Visual impairment [Unknown]
  - Herpes ophthalmic [Unknown]
  - Cough [Unknown]
  - Bronchitis [Unknown]
  - Pneumonia [Unknown]
  - Dry mouth [Unknown]
  - Dry eye [Unknown]
  - Alopecia [Unknown]
  - Corneal perforation [Unknown]
  - Eye disorder [Unknown]
  - Intentional drug misuse [Unknown]
  - Off label use [Unknown]
